FAERS Safety Report 8475342-3 (Version None)
Quarter: 2012Q2

REPORT INFORMATION
  Report Type: 
  Country: None (occurrence: None)
  Receive Date: 20120628
  Receipt Date: 20120621
  Transmission Date: 20120825
  Serious: Yes (Hospitalization, Other)
  Sender: FDA-Public Use
  Company Number: DE-UCBSA-058670

PATIENT
  Age: 24 Year
  Sex: Female

DRUGS (7)
  1. VIMPAT [Suspect]
     Dosage: 150 MG - 0 - 200 MG
     Dates: start: 20120215, end: 20120229
  2. VIMPAT [Suspect]
     Dosage: DOSE: 200 MG
     Dates: start: 20120515, end: 20120101
  3. VIMPAT [Suspect]
     Dosage: 200 MG (1-0-1)
     Dates: start: 20120301, end: 20120101
  4. VIMPAT [Suspect]
     Dosage: 50 MG (2-0-2) / ALTERNATIVE 100 MG (1-0-1)
     Dates: start: 20110909
  5. TOPIRAMAX [Concomitant]
     Dosage: 100 MG (1-0-1)
  6. TOPIRAMAX [Concomitant]
     Dosage: 50 MG (1-0-1)
  7. VIMPAT [Suspect]
     Dosage: 50 MG (1-0-1)
     Dates: start: 20110902, end: 20110908

REACTIONS (24)
  - TREMOR [None]
  - VISION BLURRED [None]
  - TYPE 1 DIABETES MELLITUS [None]
  - BALANCE DISORDER [None]
  - SOMNOLENCE [None]
  - APHASIA [None]
  - VERTIGO [None]
  - IRRITABILITY [None]
  - DRUG INTOLERANCE [None]
  - NYSTAGMUS [None]
  - DEPRESSION [None]
  - PARAPARESIS [None]
  - FATIGUE [None]
  - ASTHENIA [None]
  - CONFUSIONAL STATE [None]
  - FALL [None]
  - AKATHISIA [None]
  - DYSARTHRIA [None]
  - ATTENTION DEFICIT/HYPERACTIVITY DISORDER [None]
  - EAR DISCOMFORT [None]
  - HEART RATE DECREASED [None]
  - COORDINATION ABNORMAL [None]
  - VOMITING [None]
  - GAIT DISTURBANCE [None]
